FAERS Safety Report 11625246 (Version 1)
Quarter: 2015Q4

REPORT INFORMATION
  Report Type: Spontaneous
  Country: GB (occurrence: GB)
  Receive Date: 20151013
  Receipt Date: 20151013
  Transmission Date: 20160304
  Serious: Yes (Other)
  Sender: FDA-Public Use
  Company Number: GB-EDGEMONT-2015EDG00040

PATIENT
  Age: 54 Year
  Sex: Female

DRUGS (2)
  1. QUININE [Concomitant]
     Active Substance: QUININE
     Indication: MUSCLE SPASMS
     Dosage: 300 MG, UNK
  2. FLUOXETINE [Suspect]
     Active Substance: FLUOXETINE HYDROCHLORIDE
     Dosage: UNK, 1X/DAY

REACTIONS (1)
  - Optic ischaemic neuropathy [Recovered/Resolved]
